FAERS Safety Report 8912198 (Version 1)
Quarter: 2012Q4

REPORT INFORMATION
  Report Type: 
  Country: US (occurrence: US)
  Receive Date: 20121116
  Receipt Date: 20121116
  Transmission Date: 20130627
  Serious: Yes (Other)
  Sender: FDA-Public Use
  Company Number: US-ELI_LILLY_AND_COMPANY-US201211002405

PATIENT
  Sex: Female

DRUGS (1)
  1. CYMBALTA [Suspect]

REACTIONS (6)
  - Cataract [Unknown]
  - Mental disorder [Unknown]
  - Somnolence [Unknown]
  - Feeling abnormal [Unknown]
  - Disorientation [Unknown]
  - Intraocular pressure increased [Unknown]
